FAERS Safety Report 22342447 (Version 14)
Quarter: 2024Q2

REPORT INFORMATION
  Report Type: Spontaneous
  Country: CA (occurrence: CA)
  Receive Date: 20230519
  Receipt Date: 20240409
  Transmission Date: 20240716
  Serious: Yes (Hospitalization, Other)
  Sender: FDA-Public Use
  Company Number: CA-CELLTRION INC.-2022CA018815

PATIENT

DRUGS (18)
  1. INFLECTRA [Suspect]
     Active Substance: INFLIXIMAB-DYYB
     Indication: Crohn^s disease
     Dosage: 5 MG/KG, EVERY 0, 2, 6 WEEKS, THEN EVERY 8 WEEKS
     Route: 042
     Dates: start: 20221012
  2. INFLECTRA [Suspect]
     Active Substance: INFLIXIMAB-DYYB
     Dosage: 5 MG/KG, EVERY 0, 2, 6 WEEKS, THEN EVERY 8 WEEKS
     Route: 042
     Dates: start: 20221026
  3. INFLECTRA [Suspect]
     Active Substance: INFLIXIMAB-DYYB
     Dosage: 5 MG/KG, EVERY 0, 2, 6 WEEKS, THEN EVERY 8 WEEKS
     Route: 042
     Dates: start: 20221123
  4. INFLECTRA [Suspect]
     Active Substance: INFLIXIMAB-DYYB
     Dosage: 5 MG/KG, EVERY 0, 2, 6 WEEKS, THEN EVERY 8 WEEKS
     Route: 042
     Dates: start: 20230118
  5. INFLECTRA [Suspect]
     Active Substance: INFLIXIMAB-DYYB
     Dosage: 5 MG/KG, EVERY 0, 2, 6 WEEKS, THEN EVERY 8 WEEKS
     Route: 042
     Dates: start: 20230316
  6. INFLECTRA [Suspect]
     Active Substance: INFLIXIMAB-DYYB
     Dosage: 349.5 MG (5 MG/KG), EVERY 0, 2, 6 WEEKS, THEN EVERY 8 WEEKS
     Route: 042
     Dates: start: 20230511
  7. INFLECTRA [Suspect]
     Active Substance: INFLIXIMAB-DYYB
     Dosage: 353.5 MG (5 MG/KG), EVERY 8 WEEKS
     Route: 042
     Dates: start: 20230706
  8. INFLECTRA [Suspect]
     Active Substance: INFLIXIMAB-DYYB
     Dosage: 365.5 MG (5 MG/KG), EVERY 8 WEEKS
     Route: 042
     Dates: start: 20230829
  9. INFLECTRA [Suspect]
     Active Substance: INFLIXIMAB-DYYB
     Dosage: 360.5MG (5 MG/KG), AFTER 9 WEEKS AND 6 DAYS (PRESCRIBED WAS EVERY 8 WEEKS)
     Route: 042
     Dates: start: 20231106
  10. INFLECTRA [Suspect]
     Active Substance: INFLIXIMAB-DYYB
     Dosage: 338 MG (5 MG/KG), AFTER 10 WEEKS AND 4 DAYS (PRESCRIBED WAS 8 WEEKS)
     Route: 042
     Dates: start: 20240119
  11. INFLECTRA [Suspect]
     Active Substance: INFLIXIMAB-DYYB
     Dosage: 5 MG/KG, 0,2,6 WEEKS, THEN EVERY 8 WEEKS (350 MG AFTER 9 WEEKS AND 3 DAYS)
     Route: 042
     Dates: start: 20240325
  12. ESCITALOPRAM [Concomitant]
     Active Substance: ESCITALOPRAM OXALATE
     Dosage: UNK
  13. FAMOTIDINE [Concomitant]
     Active Substance: FAMOTIDINE
     Dosage: UNK
  14. FAMOTIDINE ACID REDUCER [Concomitant]
     Dosage: UNK
  15. HUMIRA [Concomitant]
     Active Substance: ADALIMUMAB
     Dosage: UNK
  16. PREDNISONE [Concomitant]
     Active Substance: PREDNISONE
     Dosage: UNK
  17. TACROLIMUS [Concomitant]
     Active Substance: TACROLIMUS
     Dosage: UNK
  18. ESTRADIOL [Concomitant]
     Active Substance: ESTRADIOL
     Indication: Menopausal symptoms
     Dosage: 10 UG
     Dates: start: 20240103

REACTIONS (17)
  - Blood potassium decreased [Unknown]
  - Blood magnesium decreased [Recovering/Resolving]
  - Urinary tract infection bacterial [Recovered/Resolved]
  - Renal disorder [Not Recovered/Not Resolved]
  - Oral surgery [Unknown]
  - Therapeutic response unexpected [Unknown]
  - Blood potassium increased [Unknown]
  - Condition aggravated [Recovering/Resolving]
  - Mouth ulceration [Recovered/Resolved]
  - Aphthous ulcer [Recovered/Resolved]
  - Urinary tract infection [Unknown]
  - Hypotension [Unknown]
  - Skin turgor decreased [Unknown]
  - Dehydration [Unknown]
  - Poor venous access [Unknown]
  - Decreased appetite [Unknown]
  - Nasopharyngitis [Recovering/Resolving]

NARRATIVE: CASE EVENT DATE: 20221026
